FAERS Safety Report 4731908-5 (Version None)
Quarter: 2005Q3

REPORT INFORMATION
  Report Type: 
  Country: None (occurrence: None)
  Receive Date: 20050802
  Receipt Date: 20050722
  Transmission Date: 20060218
  Serious: Yes (Hospitalization)
  Sender: FDA-Public Use
  Company Number: 2005CG01289

PATIENT
  Age: 78 Year
  Sex: Male
  Weight: 64 kg

DRUGS (11)
  1. NEXIUM [Suspect]
     Route: 048
     Dates: end: 20050507
  2. ANAFRANIL [Suspect]
     Indication: DYSTHYMIC DISORDER
     Route: 048
     Dates: end: 20050509
  3. FLUDEX [Suspect]
     Indication: HYPERTENSION
     Route: 048
     Dates: end: 20050507
  4. RAMIPRIL [Suspect]
     Indication: HYPERTENSION
     Route: 048
     Dates: end: 20050507
  5. RAMIPRIL [Suspect]
     Route: 048
     Dates: end: 20050507
  6. RAMIPRIL [Suspect]
     Route: 048
     Dates: start: 20050501
  7. RAMIPRIL [Suspect]
     Route: 048
     Dates: start: 20050501
  8. JOSIR LP [Suspect]
     Route: 048
     Dates: end: 20050507
  9. CARDENSIEL [Suspect]
     Indication: CARDIAC FAILURE
     Route: 048
  10. CORDARONE [Concomitant]
  11. SERETIDE [Concomitant]
     Dates: end: 20050507

REACTIONS (2)
  - LUNG DISORDER [None]
  - ORTHOSTATIC HYPOTENSION [None]
